FAERS Safety Report 10902589 (Version 2)
Quarter: 2015Q1

REPORT INFORMATION
  Report Type: Spontaneous
  Country: US (occurrence: US)
  Receive Date: 20150310
  Receipt Date: 20150327
  Transmission Date: 20150721
  Serious: Yes (Death, Other)
  Sender: FDA-Public Use
  Company Number: US-009507513-1503USA003431

PATIENT

DRUGS (1)
  1. ELAVIL [Suspect]
     Active Substance: AMITRIPTYLINE HYDROCHLORIDE
     Indication: COMPLETED SUICIDE
     Route: 048

REACTIONS (2)
  - Intentional overdose [Fatal]
  - Completed suicide [Fatal]
